FAERS Safety Report 6648515-X (Version None)
Quarter: 2010Q1

REPORT INFORMATION
  Report Type: 
  Country: None (occurrence: None)
  Receive Date: 20100319
  Receipt Date: 20100304
  Transmission Date: 20100710
  Serious: Yes (Other)
  Sender: FDA-Public Use
  Company Number: AMAG201000113

PATIENT
  Age: 86 Year
  Sex: Female
  Weight: 74 kg

DRUGS (16)
  1. FERAHEME [Suspect]
     Indication: IRON DEFICIENCY ANAEMIA
     Dosage: 510 MG, SINGLE, INTRAVENOUS
     Route: 042
     Dates: start: 20100216, end: 20100216
  2. ALLOPURINOL [Concomitant]
  3. ASPIRIN [Concomitant]
  4. CATAPRES [Concomitant]
  5. COREG [Concomitant]
  6. DILTIAZEM [Concomitant]
  7. DULCOLAX [Concomitant]
  8. EPOGEN [Concomitant]
  9. IMODIUM [Concomitant]
  10. INSULIN (INSULIN PROCINE) [Concomitant]
  11. LANTUS [Concomitant]
  12. JANUVIA [Concomitant]
  13. LOVENOX [Concomitant]
  14. PLAVIX [Concomitant]
  15. PROTONIX [Concomitant]
  16. ZEMPLAR [Concomitant]

REACTIONS (12)
  - ASTHENIA [None]
  - DEFAECATION URGENCY [None]
  - HYPOTENSION [None]
  - INFUSION RELATED REACTION [None]
  - MALAISE [None]
  - MUSCLE SPASMS [None]
  - NAUSEA [None]
  - PROCEDURAL HYPOTENSION [None]
  - RESTLESSNESS [None]
  - SYNCOPE [None]
  - TREMOR [None]
  - VOMITING [None]
